FAERS Safety Report 8945426 (Version 2)
Quarter: 2012Q4

REPORT INFORMATION
  Report Type: 
  Country: MX (occurrence: MX)
  Receive Date: 20121205
  Receipt Date: 20121219
  Transmission Date: 20130627
  Serious: Yes (Other)
  Sender: FDA-Public Use
  Company Number: PHHY2012MX110105

PATIENT
  Age: 66 Year
  Sex: Male

DRUGS (1)
  1. EXFORGE HCT [Suspect]
     Indication: HYPERTENSION
     Dosage: 1 DF, (320 mg vals, 10 mg amlo and 25 mg HCTZ), daily
     Route: 048
     Dates: start: 20121123

REACTIONS (3)
  - VIIth nerve paralysis [Not Recovered/Not Resolved]
  - Visual impairment [Not Recovered/Not Resolved]
  - Blood pressure inadequately controlled [Recovering/Resolving]
